FAERS Safety Report 18966407 (Version 1)
Quarter: 2021Q1

REPORT INFORMATION
  Report Type: Spontaneous
  Country: MY (occurrence: MY)
  Receive Date: 20210304
  Receipt Date: 20210304
  Transmission Date: 20210420
  Serious: Yes (Hospitalization, Other)
  Sender: FDA-Public Use
  Company Number: MY-LUPIN PHARMACEUTICALS INC.-2021-02567

PATIENT
  Age: 20 Year
  Sex: Female

DRUGS (17)
  1. POLYETHYLENE GLYCOL [Suspect]
     Active Substance: POLYETHYLENE GLYCOLS
     Indication: BOWEL PREPARATION
     Dosage: UNK
     Route: 065
  2. PARACETAMOL [Concomitant]
     Active Substance: ACETAMINOPHEN
     Indication: PROCEDURAL PAIN
     Dosage: UNK
     Route: 065
  3. CELECOXIB. [Concomitant]
     Active Substance: CELECOXIB
     Indication: PROCEDURAL PAIN
  4. MORPHINE [Suspect]
     Active Substance: MORPHINE
     Indication: DRUG PROVOCATION TEST
     Dosage: UNK
     Route: 065
  5. PREDNISOLONE. [Suspect]
     Active Substance: PREDNISOLONE
     Indication: PRODUCT USED FOR UNKNOWN INDICATION
     Dosage: 50 MILLIGRAM (PRESCRIBED AT 17HOURS, 11HOURS AND 1HOUR PRIOR TO THE IMAGING; HOWEVER, LAST DOSE WAS
     Route: 065
  6. SULFAMETHOXAZOLE [Suspect]
     Active Substance: SULFAMETHOXAZOLE
     Indication: POSTOPERATIVE WOUND INFECTION
     Dosage: UNK
     Route: 065
  7. NORMAL SALINE [Concomitant]
     Active Substance: SODIUM CHLORIDE
     Indication: WOUND TREATMENT
     Dosage: UNK
     Route: 065
  8. SULFAMETHOXAZOLE [Suspect]
     Active Substance: SULFAMETHOXAZOLE
     Indication: ESCHERICHIA INFECTION
  9. HYDROCORTISONE. [Concomitant]
     Active Substance: HYDROCORTISONE
     Indication: PRODUCT USED FOR UNKNOWN INDICATION
     Dosage: UNK
     Route: 065
  10. GENTAMICIN. [Concomitant]
     Active Substance: GENTAMICIN
     Indication: POSTOPERATIVE WOUND INFECTION
     Dosage: UNK
     Route: 065
  11. TRICLOSAN. [Concomitant]
     Active Substance: TRICLOSAN
     Indication: ANTIBIOTIC PROPHYLAXIS
     Dosage: SUBCUTICULAR TRICLOSAN COATED STRATAFIX 3?0 SUTURE
     Route: 065
  12. CIPROFLOXACIN. [Suspect]
     Active Substance: CIPROFLOXACIN
     Indication: DRUG PROVOCATION TEST
     Dosage: UNK
     Route: 065
  13. AMPICILLIN/SULBACTAM [Suspect]
     Active Substance: AMPICILLIN SODIUM\SULBACTAM SODIUM
     Indication: DRUG PROVOCATION TEST
     Dosage: UNK
     Route: 065
  14. FENTANYL. [Concomitant]
     Active Substance: FENTANYL
     Indication: PROCEDURAL PAIN
     Dosage: UNK
     Route: 065
  15. BROMHEXINE [Suspect]
     Active Substance: BROMHEXINE
     Indication: COUGH
     Dosage: UNK
     Route: 048
  16. CELECOXIB. [Concomitant]
     Active Substance: CELECOXIB
     Indication: DRUG PROVOCATION TEST
     Dosage: UNK
     Route: 065
  17. GENTAMICIN. [Concomitant]
     Active Substance: GENTAMICIN
     Indication: ESCHERICHIA INFECTION

REACTIONS (5)
  - Anaphylactic reaction [Recovered/Resolved]
  - Urticaria [Recovered/Resolved]
  - Dyspnoea [Recovered/Resolved]
  - Type I hypersensitivity [Recovered/Resolved]
  - Pruritus [Recovered/Resolved]
